FAERS Safety Report 16551030 (Version 1)
Quarter: 2019Q3

REPORT INFORMATION
  Report Type: Spontaneous
  Country: CA (occurrence: CA)
  Receive Date: 20190710
  Receipt Date: 20190710
  Transmission Date: 20191004
  Serious: Yes (Other)
  Sender: FDA-Public Use
  Company Number: CA-GLAXOSMITHKLINE-CA2019AMR120008

PATIENT
  Age: 24 Year
  Sex: Female

DRUGS (4)
  1. LIDOCAINE HYDROCHLORIDE. [Suspect]
     Active Substance: LIDOCAINE HYDROCHLORIDE
     Indication: VENTRICULAR TACHYCARDIA
     Dosage: UNK
     Route: 042
  2. SALBUTAMOL [Suspect]
     Active Substance: ALBUTEROL
     Indication: ASTHMA
     Dosage: 5 MG, QD
  3. MAGNESIUM SULFATE. [Suspect]
     Active Substance: MAGNESIUM SULFATE
     Indication: VENTRICULAR TACHYCARDIA
     Dosage: UNK
     Route: 042
  4. METOPROLOL. [Suspect]
     Active Substance: METOPROLOL
     Indication: VENTRICULAR TACHYCARDIA
     Dosage: 12.5 MG, BID
     Route: 048

REACTIONS (4)
  - Bundle branch block left [Recovered/Resolved]
  - Premature labour [Recovered/Resolved]
  - Ventricular extrasystoles [Recovered/Resolved]
  - Ventricular tachycardia [Recovered/Resolved]
